FAERS Safety Report 4609546-4 (Version None)
Quarter: 2005Q1

REPORT INFORMATION
  Report Type: 
  Country: None (occurrence: None)
  Receive Date: 20050314
  Receipt Date: 20050314
  Transmission Date: 20050727
  Serious: Yes (Hospitalization)
  Sender: FDA-Public Use
  Company Number: None

PATIENT
  Age: 52 Year
  Sex: Male
  Weight: 54.8852 kg

DRUGS (1)
  1. WARFARIN SODIUM [Suspect]
     Indication: PULMONARY EMBOLISM
     Dosage: 3.75 MG    DAILY    ORAL
     Route: 048
     Dates: start: 20031201, end: 20050310

REACTIONS (14)
  - ABDOMINAL PAIN LOWER [None]
  - CHEST DISCOMFORT [None]
  - COAGULOPATHY [None]
  - DIARRHOEA [None]
  - DRUG TOXICITY [None]
  - EPISTAXIS [None]
  - INTERNATIONAL NORMALISED RATIO INCREASED [None]
  - LABORATORY TEST ABNORMAL [None]
  - NAUSEA [None]
  - ORAL INTAKE REDUCED [None]
  - RECTAL HAEMORRHAGE [None]
  - TESTICULAR PAIN [None]
  - VOMITING [None]
  - WHITE BLOOD CELL COUNT INCREASED [None]
